FAERS Safety Report 6073346-1 (Version None)
Quarter: 2009Q1

REPORT INFORMATION
  Report Type: 
  Country: None (occurrence: None)
  Receive Date: 20090211
  Receipt Date: 20090130
  Transmission Date: 20090719
  Serious: Yes (Hospitalization)
  Sender: FDA-Public Use
  Company Number: BR-ROCHE-611778

PATIENT
  Age: 24 Year
  Sex: Female
  Weight: 56 kg

DRUGS (3)
  1. ROACUTAN [Suspect]
     Indication: ACNE
     Route: 048
     Dates: start: 20040101
  2. ROACUTAN [Suspect]
     Route: 048
     Dates: start: 20070501, end: 20070701
  3. SELENE [Concomitant]
     Indication: CONTRACEPTION
     Route: 048
     Dates: start: 20020101, end: 20080101

REACTIONS (1)
  - PILONIDAL CYST [None]
